FAERS Safety Report 11637509 (Version 1)
Quarter: 2015Q4

REPORT INFORMATION
  Report Type: Spontaneous
  Country: GB (occurrence: GB)
  Receive Date: 20151016
  Receipt Date: 20151016
  Transmission Date: 20160304
  Serious: Yes (Life-Threatening, Hospitalization, Other)
  Sender: FDA-Public Use
  Company Number: GB-SAGE PRODUCTS, LLC-1043044

PATIENT
  Age: 65 Year
  Sex: Male
  Weight: 95 kg

DRUGS (11)
  1. CALCIUM ACETATE. [Concomitant]
     Active Substance: CALCIUM ACETATE
  2. KETOVITE [Concomitant]
     Active Substance: VITAMINS
  3. ARANESP [Concomitant]
     Active Substance: DARBEPOETIN ALFA
  4. ALFACALCIDOL [Concomitant]
     Active Substance: ALFACALCIDOL
  5. DILTIAZEM HCL [Concomitant]
     Active Substance: DILTIAZEM HYDROCHLORIDE
  6. COSMOFER [Concomitant]
     Active Substance: IRON DEXTRAN
  7. LISINOPRIL. [Concomitant]
     Active Substance: LISINOPRIL
  8. CHLORHEXIDINE [Suspect]
     Active Substance: CHLORHEXIDINE
     Route: 003
     Dates: start: 20140924, end: 20140924
  9. ASPIRIN. [Concomitant]
     Active Substance: ASPIRIN
  10. ATORVASTATIN CALCIUM. [Concomitant]
     Active Substance: ATORVASTATIN CALCIUM
  11. DOXAZOSIN [Concomitant]
     Active Substance: DOXAZOSIN\DOXAZOSIN MESYLATE

REACTIONS (2)
  - Cardiac arrest [Recovered/Resolved]
  - Anaphylactic shock [Recovered/Resolved]

NARRATIVE: CASE EVENT DATE: 20140924
